FAERS Safety Report 7603628-0 (Version None)
Quarter: 2011Q3

REPORT INFORMATION
  Report Type: 
  Country: None (occurrence: None)
  Receive Date: 20110712
  Receipt Date: 20110706
  Transmission Date: 20111222
  Serious: No
  Sender: FDA-Public Use
  Company Number: US-PFIZER INC-2011152647

PATIENT
  Sex: Female

DRUGS (2)
  1. PREMPRO [Suspect]
     Dosage: 2.5 MG, ALTERNATE DAY
  2. PREMPRO [Suspect]
     Indication: MENOPAUSE
     Dosage: 2.5 MG, DAILY
     Route: 048

REACTIONS (3)
  - HOT FLUSH [None]
  - INAPPROPRIATE SCHEDULE OF DRUG ADMINISTRATION [None]
  - IRRITABILITY [None]
